FAERS Safety Report 6198013-5 (Version None)
Quarter: 2009Q2

REPORT INFORMATION
  Report Type: 
  Country: None (occurrence: None)
  Receive Date: 20090521
  Receipt Date: 20090515
  Transmission Date: 20091009
  Serious: Yes (Death, Life-Threatening, Hospitalization, Other)
  Sender: FDA-Public Use
  Company Number: US-ELI_LILLY_AND_COMPANY-US200904005873

PATIENT
  Sex: Male

DRUGS (1)
  1. FORTEO [Suspect]
     Indication: OSTEOPOROSIS
     Dates: start: 20040201

REACTIONS (7)
  - ABDOMINAL DISCOMFORT [None]
  - ARTERIOSCLEROSIS CORONARY ARTERY [None]
  - GASTROINTESTINAL DISORDER [None]
  - POST PROCEDURAL COMPLICATION [None]
  - PROCEDURAL PAIN [None]
  - URETHRAL STENT INSERTION [None]
  - VENTRICULAR FIBRILLATION [None]
